FAERS Safety Report 5699440-2 (Version None)
Quarter: 2008Q2

REPORT INFORMATION
  Report Type: 
  Country: None (occurrence: None)
  Receive Date: 20080407
  Receipt Date: 20080407
  Transmission Date: 20081010
  Serious: Yes (Other)
  Sender: FDA-Public Use
  Company Number: None

PATIENT
  Age: 5 Year
  Sex: Male
  Weight: 18.1439 kg

DRUGS (2)
  1. SINGULAIR [Suspect]
     Indication: ASTHMA
     Dosage: 4MG DAILY PO
     Route: 048
     Dates: start: 20070401, end: 20070430
  2. SINGULAIR [Suspect]
     Indication: HYPERSENSITIVITY
     Dosage: 4MG DAILY PO
     Route: 048
     Dates: start: 20070401, end: 20070430

REACTIONS (8)
  - ABNORMAL BEHAVIOUR [None]
  - ANGER [None]
  - COMPLETED SUICIDE [None]
  - CRYING [None]
  - EMOTIONAL DISORDER [None]
  - MIDDLE INSOMNIA [None]
  - PAIN IN EXTREMITY [None]
  - SCREAMING [None]
